FAERS Safety Report 4839742-2 (Version None)
Quarter: 2005Q4

REPORT INFORMATION
  Report Type: 
  Country: None (occurrence: None)
  Receive Date: 20051129
  Receipt Date: 20050729
  Transmission Date: 20060501
  Serious: No
  Sender: FDA-Public Use
  Company Number: US-GLAXOSMITHKLINE-A0568274A

PATIENT
  Age: 61 Year
  Sex: Female

DRUGS (4)
  1. WELLBUTRIN SR [Suspect]
     Indication: DEPRESSION
     Dosage: 150MG TWICE PER DAY
     Route: 048
     Dates: start: 20050722
  2. TAMOXIFEN [Concomitant]
  3. XANAX [Concomitant]
  4. PRILOSEC [Concomitant]

REACTIONS (6)
  - BLADDER DISORDER [None]
  - DYSURIA [None]
  - MUSCLE TIGHTNESS [None]
  - MUSCULAR WEAKNESS [None]
  - POLLAKIURIA [None]
  - TENSION HEADACHE [None]
